FAERS Safety Report 20750669 (Version 2)
Quarter: 2022Q2

REPORT INFORMATION
  Report Type: Other
  Country: US (occurrence: None)
  Receive Date: 20220426
  Receipt Date: 20220502
  Transmission Date: 20220720
  Serious: No
  Sender: FDA-Public Use
  Company Number: US-ROCHE-3081873

PATIENT
  Sex: Female

DRUGS (1)
  1. OCREVUS [Suspect]
     Active Substance: OCRELIZUMAB
     Indication: Relapsing multiple sclerosis
     Dosage: 300 MG/10 ML, QUANTITY 20 ML, 300 MG IV FOLLOWED BY 300 MG IV 2 WEEKS LATER?DATE OF TREATMENT: 19/AU
     Route: 042

REACTIONS (1)
  - Infection [Unknown]
